FAERS Safety Report 10056808 (Version 1)
Quarter: 2014Q2

REPORT INFORMATION
  Report Type: Spontaneous
  Country: US (occurrence: US)
  Receive Date: 20140403
  Receipt Date: 20140403
  Transmission Date: 20141212
  Serious: Yes (Death)
  Sender: FDA-Public Use
  Company Number: US-ACTAVIS-2014-06145

PATIENT
  Sex: 0

DRUGS (1)
  1. GELNIQUE (WATSON LABORATORIES) [Suspect]
     Indication: PRODUCT USED FOR UNKNOWN INDICATION
     Dosage: 10 %, UNKNOWN
     Route: 065

REACTIONS (1)
  - Death [Fatal]
